FAERS Safety Report 5044343-X (Version None)
Quarter: 2006Q3

REPORT INFORMATION
  Report Type: 
  Country: None (occurrence: None)
  Receive Date: 20060706
  Receipt Date: 20060609
  Transmission Date: 20061208
  Serious: Yes (Hospitalization)
  Sender: FDA-Public Use
  Company Number: 2006SE03280

PATIENT
  Age: 27544 Day
  Sex: Male
  Weight: 121 kg

DRUGS (5)
  1. ROSUVASTATIN [Suspect]
     Indication: CARDIOVASCULAR EVENT PROPHYLAXIS
     Route: 048
     Dates: start: 20060309
  2. ATACAND [Concomitant]
     Indication: HYPERTENSION
     Route: 048
     Dates: start: 20050101
  3. SERTRALINE HCL [Concomitant]
     Indication: DEPRESSION
     Route: 048
     Dates: start: 19890101
  4. IMOZOP [Concomitant]
     Indication: INSOMNIA
     Route: 048
     Dates: start: 19960101, end: 20060607
  5. SEREPAX [Concomitant]
     Indication: PANIC DISORDER
     Route: 048
     Dates: start: 19890101

REACTIONS (1)
  - COLONIC POLYP [None]
